FAERS Safety Report 24118914 (Version 1)
Quarter: 2024Q3

REPORT INFORMATION
  Report Type: Spontaneous
  Country: US (occurrence: None)
  Receive Date: 20240718
  Receipt Date: 20240718
  Transmission Date: 20241017
  Serious: Yes (Hospitalization)
  Sender: Public
  Company Number: None

PATIENT
  Sex: Female

DRUGS (2)
  1. ENBREL [Suspect]
     Active Substance: BENZYL ALCOHOL\ETANERCEPT
     Indication: Behcet^s syndrome
     Dosage: FREQUENCY : WEEKLY;?
     Route: 058
     Dates: start: 202405
  2. ENBREL [Suspect]
     Active Substance: BENZYL ALCOHOL\ETANERCEPT
     Indication: Polyarthritis

REACTIONS (3)
  - Hypersensitivity [None]
  - Arrhythmia [None]
  - Therapy cessation [None]
